FAERS Safety Report 8359258-9 (Version None)
Quarter: 2012Q1

REPORT INFORMATION
  Report Type: 
  Country: None (occurrence: None)
  Receive Date: 20111004
  Receipt Date: 20110822
  Transmission Date: 20120608
  Serious: No
  Sender: FDA-Public Use
  Company Number: 2011IP000152

PATIENT
  Sex: Male

DRUGS (1)
  1. BEPREVE [Suspect]
     Indication: PRODUCT USED FOR UNKNOWN INDICATION
     Dosage: ; OPH
     Route: 048

REACTIONS (3)
  - DECREASED APPETITE [None]
  - ABDOMINAL DISCOMFORT [None]
  - HYPERHIDROSIS [None]
